FAERS Safety Report 23092655 (Version 1)
Quarter: 2023Q4

REPORT INFORMATION
  Report Type: Spontaneous
  Country: DK (occurrence: DK)
  Receive Date: 20231021
  Receipt Date: 20231021
  Transmission Date: 20240110
  Serious: Yes (Hospitalization)
  Sender: FDA-Public Use
  Company Number: None

PATIENT
  Age: 48 Year
  Sex: Female

DRUGS (3)
  1. TOPIRAMATE [Suspect]
     Active Substance: TOPIRAMATE
     Indication: Migraine prophylaxis
     Dates: start: 2021, end: 202309
  2. VENLAFAXINE [Concomitant]
     Active Substance: VENLAFAXINE HYDROCHLORIDE
     Indication: Depression
     Dates: start: 20131018
  3. SUMATRIPTAN BLUEFISH [Concomitant]
     Indication: Migraine
     Dates: start: 20200706

REACTIONS (6)
  - Throat irritation [Unknown]
  - Pharyngeal swelling [Unknown]
  - Stridor [Unknown]
  - Urticaria [Unknown]
  - Anaphylactic reaction [Recovered/Resolved]
  - Pruritus [Unknown]

NARRATIVE: CASE EVENT DATE: 20230918
